FAERS Safety Report 25759648 (Version 2)
Quarter: 2025Q4

REPORT INFORMATION
  Report Type: Spontaneous
  Country: EU (occurrence: EU)
  Receive Date: 20250904
  Receipt Date: 20251020
  Transmission Date: 20260118
  Serious: Yes (Other)
  Sender: ORGANON
  Company Number: EU-ORGANON-O2509FRA000184

PATIENT
  Sex: Female
  Weight: 98 kg

DRUGS (1)
  1. NEXPLANON [Suspect]
     Active Substance: ETONOGESTREL
     Dosage: 1 IMPLANT
     Dates: start: 20250509, end: 20250829

REACTIONS (6)
  - Blindness transient [Recovered/Resolved]
  - Embolism arterial [Unknown]
  - Depression [Recovering/Resolving]
  - Dizziness [Unknown]
  - Discomfort [Recovering/Resolving]
  - Headache [Recovering/Resolving]

NARRATIVE: CASE EVENT DATE: 20250101
